FAERS Safety Report 8232842-9 (Version None)
Quarter: 2012Q1

REPORT INFORMATION
  Report Type: 
  Country: None (occurrence: None)
  Receive Date: 20120323
  Receipt Date: 20120314
  Transmission Date: 20120608
  Serious: Yes (Hospitalization, Other)
  Sender: FDA-Public Use
  Company Number: CA-ASTRAZENECA-2012SE09191

PATIENT
  Age: 79 Year
  Sex: Female

DRUGS (12)
  1. ATACAND [Suspect]
     Route: 048
  2. PRILOSEC [Suspect]
     Route: 048
     Dates: start: 20100101
  3. METFORMIN HCL [Concomitant]
     Indication: DIABETES MELLITUS
     Route: 048
  4. GLYBURIDE [Concomitant]
  5. DIABETA [Concomitant]
  6. CRESTOR [Suspect]
     Route: 048
  7. LASIX [Concomitant]
     Route: 048
  8. GLYBURIDE [Concomitant]
     Indication: DIABETES MELLITUS
     Route: 048
  9. CRESTOR [Suspect]
     Route: 048
  10. ASPIRIN [Concomitant]
     Route: 048
  11. METOPROLOL SUCCINATE [Concomitant]
     Route: 048
  12. VITAMIN B-12 [Concomitant]

REACTIONS (3)
  - BACK PAIN [None]
  - PANCREATITIS [None]
  - ABDOMINAL PAIN UPPER [None]
